FAERS Safety Report 7414515-5 (Version None)
Quarter: 2011Q2

REPORT INFORMATION
  Report Type: 
  Country: None (occurrence: None)
  Receive Date: 20110411
  Receipt Date: 20110411
  Transmission Date: 20111010
  Serious: Yes (Hospitalization)
  Sender: FDA-Public Use
  Company Number: None

PATIENT
  Age: 86 Year
  Sex: Male
  Weight: 80 kg

DRUGS (1)
  1. DIGOXIN [Suspect]
     Indication: CARDIAC FAILURE CONGESTIVE
     Dosage: .125 MG BID PO
     Route: 048
     Dates: start: 20110323, end: 20110401

REACTIONS (2)
  - CARDIOACTIVE DRUG LEVEL INCREASED [None]
  - BRADYCARDIA [None]
